FAERS Safety Report 10061368 (Version 2)
Quarter: 2014Q2

REPORT INFORMATION
  Report Type: Spontaneous
  Country: GB (occurrence: GB)
  Receive Date: 20140407
  Receipt Date: 20140428
  Transmission Date: 20141212
  Serious: Yes (Life-Threatening, Hospitalization, Other)
  Sender: FDA-Public Use
  Company Number: GB-JNJFOC-20140315471

PATIENT
  Age: 69 Year
  Sex: Male
  Weight: 88 kg

DRUGS (8)
  1. ZYTIGA [Suspect]
     Indication: PROSTATE CANCER METASTATIC
     Dosage: TAKING DRUG FOR AROUND 3 MONTHS AND WAS ADMITTED LAST WEEK, ??V1. 1000MG TWICE DAILY
     Route: 048
     Dates: start: 20140102
  2. ZYTIGA [Suspect]
     Indication: PROSTATE CANCER METASTATIC
     Route: 048
     Dates: start: 20140327
  3. PREDNISOLONE [Concomitant]
     Indication: PROSTATE CANCER
     Route: 048
  4. VOLTADEX [Concomitant]
     Route: 065
  5. PARACETAMOL [Concomitant]
     Indication: PAIN
     Route: 048
  6. OMEPRAZOLE [Concomitant]
     Indication: GASTROINTESTINAL DISORDER THERAPY
     Route: 048
  7. PHENOXYMETHYLPENICILLIN [Concomitant]
     Indication: PROPHYLAXIS
     Route: 048
  8. ZOPICLONE [Concomitant]
     Indication: SLEEP DISORDER
     Route: 048

REACTIONS (2)
  - Volvulus [Unknown]
  - Inappropriate schedule of drug administration [Unknown]
